FAERS Safety Report 7513805-5 (Version None)
Quarter: 2011Q2

REPORT INFORMATION
  Report Type: 
  Country: None (occurrence: None)
  Receive Date: 20110531
  Receipt Date: 20110525
  Transmission Date: 20111010
  Serious: Yes (Death)
  Sender: FDA-Public Use
  Company Number: PHHY2011PT45782

PATIENT
  Age: 49 Year
  Sex: Female

DRUGS (2)
  1. METFORMIN HCL [Suspect]
     Dosage: UNK
  2. FENOFIBRATE [Suspect]
     Dosage: UNK

REACTIONS (1)
  - TOXIC EPIDERMAL NECROLYSIS [None]
